FAERS Safety Report 13776046 (Version 2)
Quarter: 2017Q3

REPORT INFORMATION
  Report Type: Spontaneous
  Country: US (occurrence: US)
  Receive Date: 20170721
  Receipt Date: 20170810
  Transmission Date: 20171127
  Serious: Yes (Other)
  Sender: FDA-Public Use
  Company Number: US-009507513-1707USA007754

PATIENT
  Age: 61 Year
  Sex: Female

DRUGS (6)
  1. ZEPATIER [Suspect]
     Active Substance: ELBASVIR\GRAZOPREVIR
     Indication: HEPATITIS C
     Dosage: 1 DF, QD; TOTAL DAILY DOSE 50-100MG
     Route: 048
     Dates: start: 201706
  2. NAPROSYN [Concomitant]
     Active Substance: NAPROXEN
  3. BENAZEPRIL HYDROCHLORIDE. [Concomitant]
     Active Substance: BENAZEPRIL HYDROCHLORIDE
  4. JARDIANCE [Concomitant]
     Active Substance: EMPAGLIFLOZIN
  5. ASPIRIN. [Concomitant]
     Active Substance: ASPIRIN
  6. ZEPATIER [Suspect]
     Active Substance: ELBASVIR\GRAZOPREVIR
     Dosage: 1 DF, QD; TOTAL DAILY DOSE 50-100MG
     Route: 048
     Dates: start: 201706

REACTIONS (4)
  - Drug dose omission [Unknown]
  - Headache [Unknown]
  - Arterial aneurysm repair [Unknown]
  - Drug dose omission [Unknown]

NARRATIVE: CASE EVENT DATE: 2017
